FAERS Safety Report 6580706-9 (Version None)
Quarter: 2010Q1

REPORT INFORMATION
  Report Type: 
  Country: None (occurrence: None)
  Receive Date: 20100212
  Receipt Date: 20100203
  Transmission Date: 20100710
  Serious: Yes (Disabling)
  Sender: FDA-Public Use
  Company Number: US-MERCK-1002USA00586

PATIENT
  Age: 50 Year
  Sex: Female

DRUGS (15)
  1. JANUVIA [Suspect]
     Indication: TYPE 2 DIABETES MELLITUS
     Route: 048
     Dates: start: 20090301, end: 20090101
  2. PREVACID [Concomitant]
     Route: 065
  3. PLAVIX [Concomitant]
     Route: 065
  4. ASPIRIN [Concomitant]
     Route: 065
  5. TOPAMAX [Concomitant]
     Route: 065
  6. LEVOXYL [Concomitant]
     Route: 065
  7. LIDODERM [Concomitant]
     Route: 065
  8. PROVENTIL [Concomitant]
     Route: 065
  9. FORADIL [Concomitant]
     Route: 065
  10. LORAZEPAM [Concomitant]
     Route: 065
  11. SPIRIVA [Concomitant]
     Route: 065
  12. NASONEX [Concomitant]
     Route: 065
  13. LIPITOR [Concomitant]
     Route: 065
  14. NITROGLYCERIN [Concomitant]
     Route: 065
  15. KLOR-CON [Concomitant]
     Route: 065

REACTIONS (5)
  - DYSPHAGIA [None]
  - HERNIA [None]
  - NERVE INJURY [None]
  - THROAT IRRITATION [None]
  - VOCAL CORD DISORDER [None]
